FAERS Safety Report 19490992 (Version 1)
Quarter: 2021Q3

REPORT INFORMATION
  Report Type: Other
  Country: CA (occurrence: CA)
  Receive Date: 20210705
  Receipt Date: 20210705
  Transmission Date: 20211014
  Serious: Yes (Hospitalization, Other)
  Sender: FDA-Public Use
  Company Number: CA-ROCHE-2342693

PATIENT
  Age: 57 Year
  Sex: Female

DRUGS (20)
  1. ACTEMRA [Suspect]
     Active Substance: TOCILIZUMAB
     Indication: SYSTEMIC LUPUS ERYTHEMATOSUS
     Dosage: DRUG DOSE FIRST ADMINISTERED IS 280 MG MILLIGRAM(S)
     Route: 042
     Dates: start: 20180919, end: 20190206
  2. PFIZER?BIONTECH COVID?19 VACCINE [Suspect]
     Active Substance: TOZINAMERAN
     Indication: PRODUCT USED FOR UNKNOWN INDICATION
     Dosage: 21/APR/2021 SECOND DOSE
     Route: 065
     Dates: start: 20210416
  3. AMLODIPINE BESYLATE. [Concomitant]
     Active Substance: AMLODIPINE BESYLATE
  4. METOPROLOL. [Concomitant]
     Active Substance: METOPROLOL
  5. PREDNISONE. [Concomitant]
     Active Substance: PREDNISONE
  6. SYNTHROID [Concomitant]
     Active Substance: LEVOTHYROXINE SODIUM
  7. FLEXERIL [Concomitant]
     Active Substance: CYCLOBENZAPRINE HYDROCHLORIDE
  8. PILOCARPINE. [Concomitant]
     Active Substance: PILOCARPINE
  9. METHOTREXATE. [Concomitant]
     Active Substance: METHOTREXATE
  10. ACTEMRA [Suspect]
     Active Substance: TOCILIZUMAB
     Dosage: LAST DOSE ON: 29/MAY/2020
     Route: 042
     Dates: start: 20190306
  11. HYDROXYZINE [Concomitant]
     Active Substance: HYDROXYZINE HYDROCHLORIDE
  12. OXYCOCET [Concomitant]
     Active Substance: ACETAMINOPHEN\OXYCODONE HYDROCHLORIDE
     Dates: start: 20191221
  13. ELAVIL [Concomitant]
     Active Substance: AMITRIPTYLINE HYDROCHLORIDE
  14. PARIET [Concomitant]
     Active Substance: RABEPRAZOLE SODIUM
  15. PLAQUENIL [Concomitant]
     Active Substance: HYDROXYCHLOROQUINE SULFATE
  16. IRON [Concomitant]
     Active Substance: IRON
  17. LEUCOVORIN. [Concomitant]
     Active Substance: LEUCOVORIN
  18. IMURAN [Concomitant]
     Active Substance: AZATHIOPRINE
  19. OXYCODONE [Concomitant]
     Active Substance: OXYCODONE
  20. HYDROXYCHLOROQUINE [Concomitant]
     Active Substance: HYDROXYCHLOROQUINE

REACTIONS (13)
  - Ill-defined disorder [Recovering/Resolving]
  - Wound secretion [Recovering/Resolving]
  - Abscess limb [Recovering/Resolving]
  - Limb injury [Recovering/Resolving]
  - Pain in extremity [Unknown]
  - Candida infection [Unknown]
  - Post procedural infection [Recovering/Resolving]
  - Off label use [Unknown]
  - Ill-defined disorder [Unknown]
  - Peripheral swelling [Unknown]
  - Skin disorder [Recovering/Resolving]
  - Platelet count decreased [Not Recovered/Not Resolved]
  - White blood cell count decreased [Unknown]

NARRATIVE: CASE EVENT DATE: 2021
